FAERS Safety Report 6004023-0 (Version None)
Quarter: 2008Q4

REPORT INFORMATION
  Report Type: 
  Country: None (occurrence: None)
  Receive Date: 20081216
  Receipt Date: 20081211
  Transmission Date: 20090506
  Serious: Yes (Hospitalization)
  Sender: FDA-Public Use
  Company Number: A0757295A

PATIENT
  Sex: Female

DRUGS (3)
  1. WELLBUTRIN SR [Suspect]
     Dosage: 150MG TWICE PER DAY
     Route: 048
     Dates: end: 20081114
  2. PROVERA [Concomitant]
     Dosage: 2.5MG UNKNOWN
  3. PREMARIN [Concomitant]
     Dosage: .3MG UNKNOWN

REACTIONS (2)
  - ESSENTIAL HYPERTENSION [None]
  - PAIN [None]
